FAERS Safety Report 6471177-1 (Version None)
Quarter: 2009Q4

REPORT INFORMATION
  Report Type: 
  Country: None (occurrence: None)
  Receive Date: 20091203
  Receipt Date: 20080505
  Transmission Date: 20100525
  Serious: Yes (Other)
  Sender: FDA-Public Use
  Company Number: US-ELI_LILLY_AND_COMPANY-US200802001905

PATIENT
  Age: 82 Year
  Sex: Male
  Weight: 79.365 kg

DRUGS (8)
  1. FORTEO [Suspect]
     Indication: OSTEOPENIA
     Dates: start: 20060101, end: 20070101
  2. FORTEO [Suspect]
     Dates: start: 20080208
  3. TOPROL-XL [Concomitant]
  4. NORVASC [Concomitant]
  5. PLAVIX [Concomitant]
  6. ASPIRIN [Concomitant]
  7. ALBUTEROL [Concomitant]
  8. SKELAXIN [Concomitant]

REACTIONS (1)
  - FRACTURE NONUNION [None]
